FAERS Safety Report 8456358-X (Version None)
Quarter: 2012Q2

REPORT INFORMATION
  Report Type: 
  Country: None (occurrence: None)
  Receive Date: 20120323
  Receipt Date: 20111019
  Transmission Date: 20120825
  Serious: Yes (Hospitalization)
  Sender: FDA-Public Use
  Company Number: 163-21880-11102549

PATIENT
  Age: 67 Year
  Sex: Female

DRUGS (2)
  1. REVLIMID [Suspect]
     Indication: MULTIPLE MYELOMA
     Dosage: 15 MG,1 IN 1 D, PO, 10 MG, DAILY FOR 21 DAYS ON ,AND 7 DAYS OFF, PO, TEMPORARILY INTERRUPTED
     Route: 048
     Dates: start: 20100101, end: 20110411
  2. REVLIMID [Suspect]
     Indication: MULTIPLE MYELOMA
     Dosage: 15 MG,1 IN 1 D, PO, 10 MG, DAILY FOR 21 DAYS ON ,AND 7 DAYS OFF, PO, TEMPORARILY INTERRUPTED
     Route: 048
     Dates: start: 20110505

REACTIONS (2)
  - WHITE BLOOD CELL COUNT DECREASED [None]
  - VIRAL INFECTION [None]
